FAERS Safety Report 9356591 (Version 4)
Quarter: 2013Q3

REPORT INFORMATION
  Report Type: Report from Study
  Country: IT (occurrence: IT)
  Receive Date: 20130619
  Receipt Date: 20130927
  Transmission Date: 20140515
  Serious: Yes (Hospitalization)
  Sender: FDA-Public Use
  Company Number: IT-PFIZER INC-2013176282

PATIENT
  Age: 69 Year
  Sex: Male
  Weight: 74 kg

DRUGS (32)
  1. PREDNISONE [Suspect]
     Dosage: 100 MG, 1X/DAY
     Dates: start: 20120817, end: 20120820
  2. PREDNISONE [Suspect]
     Dosage: 75 MG, 1X/DAY
     Dates: start: 20120908, end: 20120911
  3. PREDNISONE [Suspect]
     Dosage: 75 MG, 1X/DAY
     Dates: start: 20121002, end: 20121005
  4. PREDNISONE [Suspect]
     Dosage: 75 MG, 1X/DAY
     Dates: start: 20121115, end: 20121118
  5. PREDNISONE [Suspect]
     Dosage: 75 MG, 1X/DAY
     Dates: start: 20121208, end: 20121211
  6. MAGALDRATE [Concomitant]
     Indication: GASTROOESOPHAGEAL REFLUX DISEASE
     Dosage: UNK
     Dates: start: 20130322
  7. SULFAMETHOXAZOLE W/TRIMETHOPRIM [Concomitant]
     Indication: ANTIBIOTIC PROPHYLAXIS
     Dosage: UNK
     Dates: start: 20130115
  8. FLUCONAZOLE [Concomitant]
     Indication: ANTIFUNGAL PROPHYLAXIS
     Dosage: UNK
     Dates: start: 20130322
  9. ACYCLOVIR [Concomitant]
     Indication: ANTIVIRAL PROPHYLAXIS
     Dosage: UNK
     Dates: start: 20130322
  10. ALLOPURINOL [Concomitant]
     Indication: HYPERURICAEMIA
     Dosage: UNK
     Dates: start: 20120810
  11. ALLOPURINOL [Concomitant]
     Indication: PROPHYLAXIS
  12. BICALUTAMIDE [Concomitant]
     Indication: PROSTATE CANCER RECURRENT
     Dosage: UNK
     Dates: start: 20120810
  13. LORAZEPAM [Concomitant]
     Indication: INSOMNIA
     Dosage: UNK
     Dates: start: 20120921
  14. TEMSIROLIMUS [Suspect]
     Indication: MANTLE CELL LYMPHOMA
     Dosage: 75 MG, ONCE WEEKLY (ARM B)
     Route: 042
     Dates: start: 20130521, end: 20130604
  15. METHYLPREDNISOLONE [Suspect]
     Dosage: 80 MG, UNK
     Dates: start: 20120816, end: 20120816
  16. METHYLPREDNISOLONE [Suspect]
     Dosage: 80 MG, UNK
     Dates: start: 20120907, end: 20120907
  17. METHYLPREDNISOLONE [Suspect]
     Dosage: 80 MG, UNK
     Dates: start: 20121001, end: 20121001
  18. METHYLPREDNISOLONE [Suspect]
     Dosage: 80 MG, UNK
     Dates: start: 20121022, end: 20121022
  19. METHYLPREDNISOLONE [Suspect]
     Dosage: 80 MG, UNK
     Dates: start: 20121114, end: 20121114
  20. METHYLPREDNISOLONE [Suspect]
     Dosage: 80 MG, UNK
     Dates: start: 20121207, end: 20121207
  21. DEXAMETHASONE [Suspect]
     Indication: LOCALISED OEDEMA
     Dosage: 20 MG, 1X/DAY
     Dates: start: 20130114, end: 20130117
  22. DEXAMETHASONE [Suspect]
     Dosage: 20 MG, 1X/DAY
     Dates: start: 20130211, end: 20130214
  23. DEXAMETHASONE [Suspect]
     Dosage: 1 MG, 1X/DAY
     Dates: start: 2013, end: 2013
  24. DEXAMETHASONE [Suspect]
     Dosage: 32 GTT, 1X/DAY
     Route: 048
     Dates: start: 20130513, end: 20130610
  25. HYDROCORTISONE [Suspect]
     Dosage: 200 MG, 1X/DAY
     Route: 042
     Dates: start: 20120824, end: 20120824
  26. HYDROCORTISONE [Suspect]
     Dosage: 200 MG, 1X/DAY
     Route: 042
     Dates: start: 20120907, end: 20120907
  27. HYDROCORTISONE [Suspect]
     Dosage: 200 MG, 1X/DAY
     Route: 042
     Dates: start: 20120928, end: 20120928
  28. HYDROCORTISONE [Suspect]
     Dosage: 200 MG, 1X/DAY
     Route: 042
     Dates: start: 20121022, end: 20121022
  29. HYDROCORTISONE [Suspect]
     Dosage: 200 MG, 1X/DAY
     Route: 042
     Dates: start: 20121113, end: 20121113
  30. HYDROCORTISONE [Suspect]
     Dosage: 200 MG, 1X/DAY
     Route: 042
     Dates: start: 20121207, end: 20121207
  31. HYDROCORTISONE [Suspect]
     Dosage: 200 MG, 1X/DAY
     Route: 042
     Dates: start: 20130115, end: 20130115
  32. HYDROCORTISONE [Suspect]
     Dosage: 200 MG, 1X/DAY
     Route: 042
     Dates: start: 20130207, end: 20130207

REACTIONS (1)
  - Acute abdomen [Recovered/Resolved]
